FAERS Safety Report 5904340-6 (Version None)
Quarter: 2008Q4

REPORT INFORMATION
  Report Type: 
  Country: None (occurrence: None)
  Receive Date: 20081001
  Receipt Date: 20080922
  Transmission Date: 20090506
  Serious: Yes (Other)
  Sender: FDA-Public Use
  Company Number: PHEH2008US08502

PATIENT
  Sex: Female

DRUGS (1)
  1. RECLAST [Suspect]
     Indication: OSTEOARTHRITIS
     Dosage: 5 MG, UNK
     Dates: start: 20080910

REACTIONS (2)
  - MUSCLE DISORDER [None]
  - PYREXIA [None]
